FAERS Safety Report 8781277 (Version 1)
Quarter: 2012Q4

REPORT INFORMATION
  Report Type: 
  Country: BR (occurrence: BR)
  Receive Date: 20120913
  Receipt Date: 20120913
  Transmission Date: 20130627
  Serious: Yes (Other)
  Sender: FDA-Public Use
  Company Number: BR-PFIZER INC-2012222871

PATIENT
  Age: 43 Year
  Sex: Female
  Weight: 92 kg

DRUGS (4)
  1. LYRICA [Suspect]
     Indication: BACK DISORDER
     Dosage: 75 mg (one capsuel), 2x/day
     Route: 048
     Dates: start: 201110
  2. ALPRAZOLAM [Concomitant]
     Indication: SLEEP DISORDER
     Dosage: UNK
     Dates: start: 201205
  3. METICORTEN [Concomitant]
     Indication: MUSCULOSKELETAL PAIN
     Dosage: 20 mg, 1x/day
     Dates: start: 2000
  4. OMEPRAZOLE [Concomitant]
     Indication: GASTRIC DISORDER
     Dosage: two tablets, once daily

REACTIONS (6)
  - Polyneuropathy [Unknown]
  - Vasculitis [Unknown]
  - Atrophy [Unknown]
  - Bedridden [Unknown]
  - Hypoaesthesia [Unknown]
  - Weight decreased [Recovering/Resolving]
